FAERS Safety Report 9516247 (Version 2)
Quarter: 2013Q3

REPORT INFORMATION
  Report Type: Spontaneous
  Country: CA (occurrence: CA)
  Receive Date: 20130911
  Receipt Date: 20130911
  Transmission Date: 20140515
  Serious: Yes (Other)
  Sender: FDA-Public Use
  Company Number: PHHY2013CA075227

PATIENT
  Sex: Female

DRUGS (2)
  1. BUPROPION HYDROCHLORIDE [Suspect]
     Dosage: 150 MG
     Route: 048
     Dates: start: 201306
  2. CYMBALTA [Concomitant]

REACTIONS (3)
  - Choking [Recovered/Resolved]
  - Dysphagia [Recovered/Resolved]
  - Wrong technique in drug usage process [Unknown]
